FAERS Safety Report 23589279 (Version 1)
Quarter: 2024Q1

REPORT INFORMATION
  Report Type: Spontaneous
  Country: US (occurrence: US)
  Receive Date: 20240303
  Receipt Date: 20240303
  Transmission Date: 20240410
  Serious: Yes (Other)
  Sender: FDA-Public Use
  Company Number: US-UROGEN PHARMA LTD.-2024-UGN-000010

PATIENT

DRUGS (4)
  1. JELMYTO [Suspect]
     Active Substance: MITOMYCIN
     Indication: Transitional cell cancer of the renal pelvis and ureter
     Dosage: 9 MILLILITER, ONCE A WEEK (INSTILLATION))
     Dates: start: 2023, end: 2023
  2. JELMYTO [Suspect]
     Active Substance: MITOMYCIN
     Dosage: 9 MILLILITER, ONCE A WEEK (INSTILLATION))
     Dates: start: 2023, end: 2023
  3. JELMYTO [Suspect]
     Active Substance: MITOMYCIN
     Dosage: 9 MILLILITER, ONCE A WEEK (INSTILLATION))
     Dates: start: 2023, end: 2023
  4. JELMYTO [Suspect]
     Active Substance: MITOMYCIN
     Dosage: 9 MILLILITER, ONCE A WEEK (INSTILLATION))
     Dates: start: 2024, end: 2024

REACTIONS (1)
  - Renal impairment [Unknown]
